FAERS Safety Report 7984718-X (Version None)
Quarter: 2011Q4

REPORT INFORMATION
  Report Type: 
  Country: None (occurrence: None)
  Receive Date: 20111216
  Receipt Date: 20111209
  Transmission Date: 20120403
  Serious: No
  Sender: FDA-Public Use
  Company Number: US-JNJFOC-20111205973

PATIENT
  Sex: Female
  Weight: 52.16 kg

DRUGS (7)
  1. OXYCODONE HCL [Concomitant]
     Indication: BREAKTHROUGH PAIN
     Dosage: 0.5-1MG
     Route: 048
  2. FENTANYL-100 [Suspect]
     Indication: INTERVERTEBRAL DISC PROTRUSION
     Route: 062
     Dates: start: 20060101, end: 20090101
  3. RANITIDINE [Concomitant]
     Indication: GASTROOESOPHAGEAL REFLUX DISEASE
     Route: 048
  4. XANAX [Concomitant]
     Indication: ANXIETY
     Route: 048
  5. FENTANYL-100 [Suspect]
     Indication: SPONDYLITIS
     Route: 062
     Dates: start: 20060101, end: 20090101
  6. FENTANYL-100 [Suspect]
     Route: 062
     Dates: start: 20090101
  7. FENTANYL-100 [Suspect]
     Route: 062
     Dates: start: 20090101

REACTIONS (3)
  - APPLICATION SITE EROSION [None]
  - PRODUCT QUALITY ISSUE [None]
  - WRONG TECHNIQUE IN DRUG USAGE PROCESS [None]
